FAERS Safety Report 21570798 (Version 4)
Quarter: 2024Q1

REPORT INFORMATION
  Report Type: Report from Study
  Country: JP (occurrence: JP)
  Receive Date: 20221109
  Receipt Date: 20240301
  Transmission Date: 20240410
  Serious: Yes (Hospitalization, Other)
  Sender: FDA-Public Use
  Company Number: JP-ASTELLAS-2022JP016224

PATIENT
  Age: 58 Year
  Sex: Male
  Weight: 51 kg

DRUGS (7)
  1. ENFORTUMAB VEDOTIN [Suspect]
     Active Substance: ENFORTUMAB VEDOTIN
     Indication: Transitional cell carcinoma
     Route: 065
     Dates: start: 20220118, end: 20220118
  2. GEMCITABINE HYDROCHLORIDE [Concomitant]
     Active Substance: GEMCITABINE HYDROCHLORIDE
     Indication: Transitional cell carcinoma
     Dosage: UNK UNK, UNKNOWN FREQ.
     Route: 065
     Dates: start: 20200430, end: 20200831
  3. GEMCITABINE HYDROCHLORIDE [Concomitant]
     Active Substance: GEMCITABINE HYDROCHLORIDE
     Dosage: UNK UNK, UNKNOWN FREQ.
     Route: 065
     Dates: start: 20210514, end: 20210719
  4. GEMCITABINE HYDROCHLORIDE [Concomitant]
     Active Substance: GEMCITABINE HYDROCHLORIDE
     Dosage: UNK UNK, UNKNOWN FREQ.
     Route: 065
     Dates: start: 20210803, end: 20220104
  5. CARBOPLATIN [Concomitant]
     Active Substance: CARBOPLATIN
     Indication: Transitional cell carcinoma
     Dosage: UNK UNK, UNKNOWN FREQ.
     Route: 065
     Dates: start: 20210803, end: 20220104
  6. OXYCODONE [Concomitant]
     Active Substance: OXYCODONE\OXYCODONE HYDROCHLORIDE
     Indication: Product used for unknown indication
     Dosage: 40MG, TWICE DAILY, IN THE MORNING AND EVENING
     Route: 065
     Dates: start: 20220125, end: 20220216
  7. PREGABALIN [Concomitant]
     Active Substance: PREGABALIN
     Indication: Product used for unknown indication
     Dosage: 75MG, TWICE DAILY, IN THE MORNING AND EVENING
     Route: 065
     Dates: start: 20220125, end: 20220216

REACTIONS (1)
  - Osteomyelitis [Recovering/Resolving]

NARRATIVE: CASE EVENT DATE: 20220120
